FAERS Safety Report 25523322 (Version 3)
Quarter: 2025Q4

REPORT INFORMATION
  Report Type: Report from Study
  Country: US (occurrence: US)
  Receive Date: 20250707
  Receipt Date: 20251009
  Transmission Date: 20260117
  Serious: Yes (Other)
  Sender: ABBVIE
  Company Number: US-ABBVIE-6304627

PATIENT
  Age: 86 Year
  Sex: Female
  Weight: 70 kg

DRUGS (2)
  1. RINVOQ [Suspect]
     Active Substance: UPADACITINIB
     Indication: Colitis ulcerative
     Route: 048
     Dates: start: 20250225
  2. RINVOQ [Suspect]
     Active Substance: UPADACITINIB
     Indication: Colitis ulcerative
     Route: 048

REACTIONS (5)
  - Nephrolithiasis [Recovering/Resolving]
  - Alopecia [Unknown]
  - Colitis ulcerative [Recovered/Resolved]
  - Musculoskeletal chest pain [Recovering/Resolving]
  - Calculus bladder [Recovered/Resolved]

NARRATIVE: CASE EVENT DATE: 20250101
